FAERS Safety Report 23128850 (Version 2)
Quarter: 2023Q4

REPORT INFORMATION
  Report Type: Spontaneous
  Country: ES (occurrence: ES)
  Receive Date: 20231031
  Receipt Date: 20231215
  Transmission Date: 20240109
  Serious: Yes (Death, Other)
  Sender: FDA-Public Use
  Company Number: ES-AMGEN-ESPSP2023190718

PATIENT

DRUGS (9)
  1. FILGRASTIM [Suspect]
     Active Substance: FILGRASTIM
     Indication: Haematopoietic stem cell mobilisation
     Dosage: GREATER OR EQUAL TO 5 MICRO G/KG/D FROM DAY 6 UNTIL NEUTROPHIL RECOVERY
     Route: 065
  2. FILGRASTIM [Suspect]
     Active Substance: FILGRASTIM
     Indication: Prophylaxis
  3. PEGFILGRASTIM [Suspect]
     Active Substance: PEGFILGRASTIM
     Indication: Prophylaxis
     Dosage: 6 MILLIGRAM, DAY +6
     Route: 065
  4. LENALIDOMIDE [Suspect]
     Active Substance: LENALIDOMIDE
     Indication: Diffuse large B-cell lymphoma
     Dosage: 10 MILLIGRAM, QD, DAYS 1-14 OF EVERY 21 DAYS CYCLE
     Route: 065
  5. RITUXIMAB [Suspect]
     Active Substance: RITUXIMAB
     Indication: Diffuse large B-cell lymphoma
     Dosage: 375 MILLIGRAM/SQ. METER, DAY 1
     Route: 065
  6. ETOPOSIDE [Suspect]
     Active Substance: ETOPOSIDE
     Indication: Diffuse large B-cell lymphoma
     Dosage: 40 MILLIGRAM/SQ. METER, DAYS 1-4
     Route: 065
  7. CISPLATIN [Suspect]
     Active Substance: CISPLATIN
     Indication: Diffuse large B-cell lymphoma
     Dosage: 25 MILLIGRAM/SQ. METER, DAYS 1-4
     Route: 065
  8. CYTARABINE [Suspect]
     Active Substance: CYTARABINE
     Indication: Diffuse large B-cell lymphoma
     Dosage: 2000 MILLIGRAM/SQ. METER, DAY 5
     Route: 065
  9. METHYLPREDNISOLONE [Suspect]
     Active Substance: METHYLPREDNISOLONE
     Indication: Diffuse large B-cell lymphoma
     Dosage: 500 MILLIGRAM, DAYS 1-5
     Route: 065

REACTIONS (39)
  - Death [Fatal]
  - Diffuse large B-cell lymphoma [Fatal]
  - Pneumonia pseudomonal [Fatal]
  - Enterococcal infection [Fatal]
  - Neutropenia [Unknown]
  - Febrile neutropenia [Unknown]
  - Lymphopenia [Unknown]
  - Mastoiditis [Unknown]
  - Pneumonia [Unknown]
  - Non-Hodgkin^s lymphoma [Unknown]
  - Pulmonary embolism [Unknown]
  - Device related thrombosis [Unknown]
  - Adenocarcinoma of colon [Unknown]
  - Blood stem cell transplant failure [Unknown]
  - Papillary thyroid cancer [Unknown]
  - Abdominal pain [Unknown]
  - Hyperglycaemia [Unknown]
  - Hypocalcaemia [Unknown]
  - Hypokalaemia [Unknown]
  - Hypomagnesaemia [Unknown]
  - Leukopenia [Unknown]
  - Respiratory tract infection [Unknown]
  - Anaemia [Unknown]
  - Thrombocytopenia [Unknown]
  - Fatigue [Unknown]
  - Decreased appetite [Unknown]
  - Asthenia [Unknown]
  - Diarrhoea [Unknown]
  - Leukocytosis [Unknown]
  - Blood stem cell harvest failure [Unknown]
  - Oedema [Unknown]
  - Hypotension [Unknown]
  - Paraesthesia [Unknown]
  - Hypertension [Unknown]
  - Nausea [Unknown]
  - Constipation [Unknown]
  - Headache [Unknown]
  - Pyrexia [Unknown]
  - Vomiting [Unknown]
